FAERS Safety Report 5246585-7 (Version None)
Quarter: 2007Q1

REPORT INFORMATION
  Report Type: 
  Country: None (occurrence: None)
  Receive Date: 20070222
  Receipt Date: 20070222
  Transmission Date: 20070707
  Serious: Yes (Hospitalization)
  Sender: FDA-Public Use
  Company Number: None

PATIENT
  Age: 84 Year
  Sex: Female
  Weight: 80.7403 kg

DRUGS (17)
  1. XOPENEX [Suspect]
     Indication: BRONCHIAL DISORDER
     Dosage: 0.63MG  EVERY 4 HOURS PRN  OTHER
     Route: 050
     Dates: start: 20070213, end: 20070213
  2. VESICARE [Concomitant]
  3. NAPROXEN [Concomitant]
  4. PREMARIN [Concomitant]
  5. CYCLOPHOSPHAMIDE [Concomitant]
  6. ALENDRONATE SODIUM [Concomitant]
  7. LOTEMAX [Concomitant]
  8. RESTASIS [Concomitant]
  9. SYSTANE [Concomitant]
  10. ERYTHROMYCIN [Concomitant]
  11. OCUVITE [Concomitant]
  12. LEVOFLOXACIN [Concomitant]
  13. CEFTRIAXONE [Concomitant]
  14. ESOMEPRAZOLE MAGNESIUM [Concomitant]
  15. THERATEARS [Concomitant]
  16. IPRATROPIUM BROMIDE [Concomitant]
  17. METOPROLOL SUCCINATE [Concomitant]

REACTIONS (4)
  - ATRIAL FIBRILLATION [None]
  - FALL [None]
  - HYPOXIA [None]
  - PNEUMONIA [None]
